FAERS Safety Report 8739766 (Version 2)
Quarter: 2013Q4

REPORT INFORMATION
  Report Type: Spontaneous
  Country: US (occurrence: US)
  Receive Date: 20120823
  Receipt Date: 20131031
  Transmission Date: 20140711
  Serious: No
  Sender: FDA-Public Use
  Company Number: US-009507513-2011SP059162

PATIENT
  Age: 28 Year
  Sex: Female
  Weight: 100.23 kg

DRUGS (1)
  1. IMPLANON [Suspect]
     Indication: CONTRACEPTION
     Dosage: 68 MG, UNK
     Route: 059
     Dates: start: 2008

REACTIONS (6)
  - Incorrect drug administration duration [Unknown]
  - Ultrasound scan abnormal [Unknown]
  - Nuclear magnetic resonance imaging abnormal [Unknown]
  - Medical device complication [Not Recovered/Not Resolved]
  - Medical device complication [Not Recovered/Not Resolved]
  - No adverse event [Unknown]
